FAERS Safety Report 6688087-7 (Version None)
Quarter: 2010Q2

REPORT INFORMATION
  Report Type: 
  Country: None (occurrence: None)
  Receive Date: 20100420
  Receipt Date: 20100419
  Transmission Date: 20101027
  Serious: Yes (Hospitalization, Other)
  Sender: FDA-Public Use
  Company Number: US-SANOFI-AVENTIS-2010SA021585

PATIENT
  Age: 65 Year
  Sex: Female

DRUGS (2)
  1. LOVENOX [Suspect]
     Route: 065
     Dates: start: 20100401, end: 20100409
  2. LOVENOX [Suspect]
     Route: 065
     Dates: start: 20100401, end: 20100409

REACTIONS (6)
  - ANGIOEDEMA [None]
  - FEELING HOT [None]
  - INJECTION SITE HAEMATOMA [None]
  - INJECTION SITE PAIN [None]
  - SWELLING [None]
  - URTICARIA [None]
